FAERS Safety Report 5014083-1 (Version None)
Quarter: 2006Q2

REPORT INFORMATION
  Report Type: 
  Country: None (occurrence: None)
  Receive Date: 20060414
  Receipt Date: 20060130
  Transmission Date: 20061013
  Serious: No
  Sender: FDA-Public Use
  Company Number: 2006SP000556

PATIENT
  Age: 50 Year
  Sex: Female
  Weight: 154.223 kg

DRUGS (13)
  1. LUNESTA [Suspect]
     Indication: INSOMNIA
     Dosage: 3 MG;HS;ORAL
     Route: 048
     Dates: start: 20060129
  2. VYTORIN [Concomitant]
  3. AMLODIPINE [Concomitant]
  4. SYNTHROID [Concomitant]
  5. AVANDIA [Concomitant]
  6. GLUCOPHAGE [Concomitant]
  7. TIZANIDINE HCL [Concomitant]
  8. VITAMINS [Concomitant]
  9. PANTOPRAZOLE [Concomitant]
  10. FLUOXETINE [Concomitant]
  11. VICOPROFEN [Concomitant]
  12. MIDRIN [Concomitant]
  13. STADOL [Concomitant]

REACTIONS (1)
  - DYSGEUSIA [None]
